FAERS Safety Report 24787715 (Version 4)
Quarter: 2025Q1

REPORT INFORMATION
  Report Type: Spontaneous
  Country: JP (occurrence: JP)
  Receive Date: 20241230
  Receipt Date: 20250308
  Transmission Date: 20250409
  Serious: Yes (Death)
  Sender: ROCHE
  Company Number: JP-CHUGAI-2024044954

PATIENT
  Age: 40 Year
  Sex: Female
  Weight: 17 kg

DRUGS (11)
  1. EVRYSDI [Suspect]
     Active Substance: RISDIPLAM
     Indication: Spinal muscular atrophy
     Dosage: 0.25 MILLIGRAM/KILOGRAM, QD
     Route: 048
     Dates: start: 20211213
  2. VALPROATE SODIUM [Concomitant]
     Active Substance: VALPROATE SODIUM
     Route: 048
  3. SINGULAIR [Concomitant]
     Active Substance: MONTELUKAST SODIUM
     Route: 048
  4. LEVOCARNITINE [Concomitant]
     Active Substance: LEVOCARNITINE
     Route: 048
  5. CINAL [ASCORBIC ACID;CALCIUM PANTOTHENATE] [Concomitant]
     Route: 048
  6. VOLTAREN [Concomitant]
     Active Substance: DICLOFENAC SODIUM
     Route: 061
  7. TULOBUTEROL [Concomitant]
     Active Substance: TULOBUTEROL
     Route: 003
  8. KETOPROFEN [Concomitant]
     Active Substance: KETOPROFEN
     Route: 061
  9. MUCOSOLVAN DS [Concomitant]
     Route: 048
  10. RABEPRAZOLE SODIUM [Concomitant]
     Active Substance: RABEPRAZOLE SODIUM
     Route: 065
  11. MAGNESIUM OXIDE [Concomitant]
     Active Substance: MAGNESIUM OXIDE
     Route: 065

REACTIONS (2)
  - COVID-19 [Fatal]
  - Pneumonia [Fatal]

NARRATIVE: CASE EVENT DATE: 20240101
